FAERS Safety Report 15661898 (Version 1)
Quarter: 2018Q4

REPORT INFORMATION
  Report Type: Spontaneous
  Country: US (occurrence: US)
  Receive Date: 20181127
  Receipt Date: 20181127
  Transmission Date: 20190205
  Serious: Yes (Other)
  Sender: FDA-Public Use
  Company Number: US-BAYER-2018-217535

PATIENT
  Sex: Male

DRUGS (2)
  1. BAYER ASPIRIN [Suspect]
     Active Substance: ASPIRIN
     Dosage: UNK
  2. PHILLIPS^ FIBER GOOD GUMMIES [Suspect]
     Active Substance: INULIN
     Dosage: 2 DF, BID
     Route: 048

REACTIONS (3)
  - Neoplasm malignant [Unknown]
  - Product physical consistency issue [Unknown]
  - Poor quality product administered [Unknown]
